FAERS Safety Report 7473126-6 (Version None)
Quarter: 2011Q2

REPORT INFORMATION
  Report Type: 
  Country: None (occurrence: None)
  Receive Date: 20110503
  Receipt Date: 20110418
  Transmission Date: 20111010
  Serious: Yes (Hospitalization)
  Sender: FDA-Public Use
  Company Number: DSU-2011-02790

PATIENT
  Age: 68 Year
  Sex: Male
  Weight: 122 kg

DRUGS (6)
  1. BENICAR HCT [Suspect]
     Indication: ESSENTIAL HYPERTENSION
     Dosage: 20/12.5, 40/25  MG (QD0, PER ORAL
     Route: 048
     Dates: start: 20090319, end: 20090420
  2. BENICAR HCT [Suspect]
     Indication: ESSENTIAL HYPERTENSION
     Dosage: 20/12.5, 40/25  MG (QD0, PER ORAL
     Route: 048
     Dates: start: 20090421, end: 20090503
  3. PRILOSEC [Concomitant]
  4. ELEBREX (CELECOXIB) [Concomitant]
  5. LOTGEMAX (LOTEPREDNOL ETABONATE) [Concomitant]
  6. DARVOCET (PARACETAMOL, DEXTROPROPOXYPHENE HYDROCHLORIDE) (TABLET) [Concomitant]

REACTIONS (6)
  - DEEP VEIN THROMBOSIS [None]
  - NAUSEA [None]
  - ATELECTASIS [None]
  - LUNG NEOPLASM [None]
  - MUSCLE SPASMS [None]
  - PULMONARY EMBOLISM [None]
